FAERS Safety Report 21356240 (Version 1)
Quarter: 2022Q3

REPORT INFORMATION
  Report Type: Spontaneous
  Country: CA (occurrence: CA)
  Receive Date: 20220920
  Receipt Date: 20220920
  Transmission Date: 20221027
  Serious: Yes (Other)
  Sender: FDA-Public Use
  Company Number: CA-ELI_LILLY_AND_COMPANY-US202209008770

PATIENT
  Age: 40 Year

DRUGS (1)
  1. HUMALOG [Suspect]
     Active Substance: INSULIN LISPRO
     Indication: Diabetes mellitus
     Dosage: UNK UNK, UNKNOWN
     Route: 065

REACTIONS (3)
  - Umbilical cord abnormality [Recovered/Resolved]
  - Amniotic fluid volume decreased [Recovered/Resolved]
  - Maternal exposure during pregnancy [Recovered/Resolved]
